FAERS Safety Report 8997862 (Version 1)
Quarter: 2013Q1

REPORT INFORMATION
  Report Type: Spontaneous
  Country: US (occurrence: US)
  Receive Date: 20130104
  Receipt Date: 20130104
  Transmission Date: 20140127
  Serious: No
  Sender: FDA-Public Use
  Company Number: US-B.I. PHARMACEUTICALS,INC./RIDGEFIELD-2012-BI-04224BP

PATIENT
  Sex: Male

DRUGS (3)
  1. PRADAXA [Suspect]
     Indication: ATRIAL FIBRILLATION
     Dosage: 300 MG
     Route: 048
     Dates: start: 2010
  2. TAMSULOSIN [Concomitant]
     Indication: PROSTATOMEGALY
     Route: 048
  3. METOPROLOL [Concomitant]
     Dosage: 200 MG
     Route: 048

REACTIONS (1)
  - Alanine aminotransferase increased [Recovered/Resolved]
